FAERS Safety Report 7149328-5 (Version None)
Quarter: 2010Q4

REPORT INFORMATION
  Report Type: 
  Country: None (occurrence: None)
  Receive Date: 20101209
  Receipt Date: 20101202
  Transmission Date: 20110411
  Serious: Yes (Hospitalization)
  Sender: FDA-Public Use
  Company Number: DE-ABBOTT-10P-062-0689539-00

PATIENT
  Age: 51 Year
  Sex: Female

DRUGS (22)
  1. ZEMPLAR [Suspect]
     Indication: HYPERPARATHYROIDISM SECONDARY
     Dates: end: 20100310
  2. ZEMPLAR [Suspect]
     Dosage: 15 MCG PER WEEK
     Route: 042
     Dates: start: 20100310
  3. FUROSEMID [Concomitant]
     Indication: PRODUCT USED FOR UNKNOWN INDICATION
     Dosage: 350 MG PER WEEK
     Route: 048
     Dates: start: 20081118, end: 20100304
  4. FUROSEMID [Concomitant]
     Dosage: 1120 MG PER WEEK
     Route: 048
     Dates: start: 20100305
  5. HYLO-COMOD [Concomitant]
     Indication: EYE DISORDER
     Dosage: 7 DROPS PER WEEK
     Dates: start: 20061023, end: 20100304
  6. ALENDRON ACID [Concomitant]
     Indication: PRODUCT USED FOR UNKNOWN INDICATION
     Dosage: 70 MG PER WEEK
     Route: 048
     Dates: start: 20071008, end: 20100304
  7. FOSRENOL [Concomitant]
     Indication: PRODUCT USED FOR UNKNOWN INDICATION
     Dosage: 10500 MG PER WEEK
     Route: 048
     Dates: start: 20080806, end: 20100304
  8. METOPROLOL [Concomitant]
     Indication: PRODUCT USED FOR UNKNOWN INDICATION
     Dosage: 700 MG PER WEEK
     Route: 048
     Dates: start: 20081117, end: 20100304
  9. METOPROLOL [Concomitant]
     Dosage: 175 MG PER WEEK
     Route: 048
     Dates: start: 20100312
  10. COLECALCIFEROL [Concomitant]
     Indication: PRODUCT USED FOR UNKNOWN INDICATION
     Dosage: 350 IU PER WEEK
     Route: 048
     Dates: start: 20090123, end: 20100304
  11. COLECALCIFEROL [Concomitant]
     Dosage: 3500 IU PER WEEK
     Route: 048
     Dates: start: 20100310
  12. NATRIUMHYDROGENCARBONAT [Concomitant]
     Indication: PRODUCT USED FOR UNKNOWN INDICATION
     Dosage: 14 G PER WEEK
     Route: 048
     Dates: start: 20091104, end: 20100304
  13. DENVELA [Concomitant]
     Indication: PRODUCT USED FOR UNKNOWN INDICATION
     Dosage: 33.6 G PER WEEK
     Route: 048
     Dates: start: 20091104, end: 20100304
  14. TACROLIMUS [Concomitant]
     Indication: PRODUCT USED FOR UNKNOWN INDICATION
     Dosage: 70 MG PER WEEK
     Route: 048
     Dates: start: 20100304
  15. CELLCEPT [Concomitant]
     Indication: PRODUCT USED FOR UNKNOWN INDICATION
     Dosage: 14000 MG PER WEEK
     Route: 048
     Dates: start: 20100304
  16. METHYLPREDNISOLONE [Concomitant]
     Indication: PRODUCT USED FOR UNKNOWN INDICATION
     Dosage: 140 MG PER WEEK
     Route: 048
     Dates: start: 20100304
  17. NYSTATIN [Concomitant]
     Indication: PRODUCT USED FOR UNKNOWN INDICATION
     Dosage: 21 ML PER WEEK
     Route: 048
     Dates: start: 20100304
  18. PANTOPRAZOLE SODIUM [Concomitant]
     Indication: PRODUCT USED FOR UNKNOWN INDICATION
     Dosage: 280 MG PER WEEK
     Route: 048
     Dates: start: 20100304
  19. VALGANCICLOVIR HCL [Concomitant]
     Indication: PRODUCT USED FOR UNKNOWN INDICATION
     Dosage: 3-4 X 450 MG PER WEEK
     Route: 048
     Dates: start: 20100304, end: 20100310
  20. COTRIM [Concomitant]
     Indication: PRODUCT USED FOR UNKNOWN INDICATION
     Dosage: 3360 MG PER WEEK
     Route: 048
     Dates: start: 20100312, end: 20100326
  21. DAPSON [Concomitant]
     Indication: PRODUCT USED FOR UNKNOWN INDICATION
     Dosage: 700 MG PER WEEK
     Route: 048
     Dates: start: 20100326
  22. ISONIAZID [Concomitant]
     Indication: PRODUCT USED FOR UNKNOWN INDICATION
     Dosage: 700 MG PER WEEK
     Route: 048
     Dates: start: 20100326

REACTIONS (1)
  - TRANSPLANT FAILURE [None]
